FAERS Safety Report 10749792 (Version 4)
Quarter: 2015Q1

REPORT INFORMATION
  Report Type: Spontaneous
  Country: US (occurrence: US)
  Receive Date: 20150129
  Receipt Date: 20150219
  Transmission Date: 20150721
  Serious: Yes (Hospitalization, Other)
  Sender: FDA-Public Use
  Company Number: US-GLAXOSMITHKLINE-A1077006A

PATIENT
  Sex: Male

DRUGS (3)
  1. FLOLAN [Suspect]
     Active Substance: EPOPROSTENOL SODIUM
     Indication: COR PULMONALE CHRONIC
     Dosage: 21 NG/KG/MIN
  2. FLOLAN [Suspect]
     Active Substance: EPOPROSTENOL SODIUM
     Indication: PULMONARY HYPERTENSION
     Dosage: 19 NG/KG/MIN CONTINUOUSLYCONCENTRATION: 30,000 NG/MLVIAL STRENGTH 1.5 MG
     Route: 042
     Dates: start: 20140429
  3. FLOLAN [Suspect]
     Active Substance: EPOPROSTENOL SODIUM
     Dosage: 21NG/KG/MIN (CONCENTRATION 30,000 NG/ML, PUMP RATE 53 ML/DAY, VIAL STRENGTH 1.5 MG), CO
     Route: 042

REACTIONS (3)
  - Hospitalisation [Unknown]
  - Tooth extraction [Unknown]
  - Device alarm issue [Unknown]
